FAERS Safety Report 19211749 (Version 1)
Quarter: 2021Q2

REPORT INFORMATION
  Report Type: Spontaneous
  Country: US (occurrence: US)
  Receive Date: 20210504
  Receipt Date: 20210504
  Transmission Date: 20210717
  Serious: Yes (Other)
  Sender: FDA-Public Use
  Company Number: None

PATIENT
  Age: 61 Year
  Sex: Female
  Weight: 60.75 kg

DRUGS (7)
  1. GLUCOSAMINE [Concomitant]
     Active Substance: GLUCOSAMINE
  2. SODIUM NAPROSYN [Concomitant]
  3. BITTER LEMON [Concomitant]
  4. COLLAGEN [Concomitant]
     Active Substance: COLLAGEN
  5. NP THYROID [Suspect]
     Active Substance: LEVOTHYROXINE\LIOTHYRONINE
     Indication: HYPOTHYROIDISM
     Dosage: ?          QUANTITY:380 TABLET(S);?
     Route: 048
  6. CINNAMON. [Concomitant]
     Active Substance: CINNAMON
  7. TURMERIC [Concomitant]
     Active Substance: HERBALS\TURMERIC

REACTIONS (6)
  - Alopecia [None]
  - Hypothyroidism [None]
  - Recalled product administered [None]
  - Weight increased [None]
  - Dry skin [None]
  - Thirst [None]

NARRATIVE: CASE EVENT DATE: 20210101
